FAERS Safety Report 17859131 (Version 1)
Quarter: 2020Q2

REPORT INFORMATION
  Report Type: Spontaneous
  Country: PT (occurrence: PT)
  Receive Date: 20200604
  Receipt Date: 20200604
  Transmission Date: 20200714
  Serious: Yes (Hospitalization, Other)
  Sender: FDA-Public Use
  Company Number: PT-TEVA-2020-PT-1244902

PATIENT
  Age: 58 Year
  Sex: Female

DRUGS (7)
  1. AMILORIDE W/HYDROCHLOROTHIAZIDE [Suspect]
     Active Substance: AMLODIPINE\HYDROCHLOROTHIAZIDE\OLMESARTAN
     Dosage: LESS THAN 1 MONTH AGO AS PRESCRIBE BY THE ASSISTANT CARDIOLOGIST
     Route: 065
  2. DAPAGLIFOZIN [Concomitant]
     Active Substance: DAPAGLIFLOZIN
     Route: 065
  3. PITAVASTATIN. [Concomitant]
     Active Substance: PITAVASTATIN CALCIUM
     Route: 065
  4. METFORMIN [Concomitant]
     Active Substance: METFORMIN HYDROCHLORIDE
     Route: 065
  5. TICLOPIDINE [Suspect]
     Active Substance: TICLOPIDINE
     Dosage: LESS THAN 1 MONTH AGO AS PRESCRIBE BY THE ASSISTANT CARDIOLOGIST.
     Route: 065
  6. ALPRAZOLAM. [Concomitant]
     Active Substance: ALPRAZOLAM
     Route: 065
  7. NEBIVOLOL. [Concomitant]
     Active Substance: NEBIVOLOL
     Route: 065

REACTIONS (1)
  - Febrile neutropenia [Recovered/Resolved]
